FAERS Safety Report 5248647-7 (Version None)
Quarter: 2007Q1

REPORT INFORMATION
  Report Type: 
  Country: None (occurrence: None)
  Receive Date: 20070226
  Receipt Date: 20070226
  Transmission Date: 20070707
  Serious: Yes (Other)
  Sender: FDA-Public Use
  Company Number: None

PATIENT
  Age: 36 Year
  Sex: Female
  Weight: 90.7194 kg

DRUGS (2)
  1. PAROXETINE [Suspect]
     Indication: ANXIETY
     Dosage: 40 MG ONCE A DAY PO
     Route: 048
     Dates: start: 20060910, end: 20070208
  2. PAROXETINE [Suspect]
     Indication: DEPRESSION
     Dosage: 40 MG ONCE A DAY PO
     Route: 048
     Dates: start: 20060910, end: 20070208

REACTIONS (3)
  - DRUG INEFFECTIVE [None]
  - DRUG WITHDRAWAL SYNDROME [None]
  - HYPOAESTHESIA [None]
